FAERS Safety Report 4303593-8 (Version None)
Quarter: 2004Q1

REPORT INFORMATION
  Report Type: 
  Country: None (occurrence: None)
  Receive Date: 20040223
  Receipt Date: 20040213
  Transmission Date: 20041129
  Serious: No
  Sender: FDA-Public Use
  Company Number: 2003GB03344

PATIENT
  Age: 78 Year
  Sex: Male
  Weight: 60 kg

DRUGS (2)
  1. NEXIUM [Suspect]
     Dosage: 20 MG PO
     Route: 048
     Dates: start: 20030623, end: 20031212
  2. PROCHLORPERAZINE [Concomitant]

REACTIONS (1)
  - HALLUCINATION, VISUAL [None]
